FAERS Safety Report 6661961-3 (Version None)
Quarter: 2010Q1

REPORT INFORMATION
  Report Type: 
  Country: None (occurrence: None)
  Receive Date: 20100331
  Receipt Date: 20091112
  Transmission Date: 20100710
  Serious: Yes (Life-Threatening)
  Sender: FDA-Public Use
  Company Number: US-BRISTOL-MYERS SQUIBB COMPANY-14838643

PATIENT
  Age: 57 Year
  Sex: Male
  Weight: 56 kg

DRUGS (9)
  1. ERBITUX [Suspect]
     Indication: LARYNGEAL CANCER
     Dosage: 668MG WAS ACCIDENTALLY MIXED.50MG WAS DRAWN UP AND INFUSED
  2. ALBUTEROL [Concomitant]
  3. AMBIEN [Concomitant]
  4. COMPAZINE [Concomitant]
  5. FENTANYL CITRATE [Concomitant]
  6. MAGNESIUM OXIDE [Concomitant]
  7. MIRALAX [Concomitant]
  8. POTASSIUM CHLORIDE [Concomitant]
  9. REGLAN [Concomitant]

REACTIONS (1)
  - HYPERSENSITIVITY [None]
